FAERS Safety Report 8913724 (Version 1)
Quarter: 2012Q4

REPORT INFORMATION
  Report Type: 
  Country: BR (occurrence: BR)
  Receive Date: 20121119
  Receipt Date: 20121119
  Transmission Date: 20130627
  Serious: Yes (Life-Threatening, Other)
  Sender: FDA-Public Use
  Company Number: BR-JNJFOC-20121104511

PATIENT
  Age: 75 Year
  Sex: Male
  Weight: 52 kg

DRUGS (4)
  1. DUROGESIC D-TRANS [Suspect]
     Indication: CANCER PAIN
     Dosage: half patch
     Route: 062
  2. DUROGESIC D-TRANS [Suspect]
     Indication: CANCER PAIN
     Route: 062
  3. DUROGESIC D-TRANS [Suspect]
     Indication: CANCER PAIN
     Route: 062
     Dates: start: 20121020
  4. HALDOL [Suspect]
     Indication: ANXIETY
     Route: 065

REACTIONS (4)
  - Renal failure [Not Recovered/Not Resolved]
  - Respiratory arrest [Recovered/Resolved]
  - Hypoventilation [Recovered/Resolved]
  - Medication error [Recovered/Resolved]
